FAERS Safety Report 22116999 (Version 1)
Quarter: 2023Q1

REPORT INFORMATION
  Report Type: Spontaneous
  Country: US (occurrence: US)
  Receive Date: 20230320
  Receipt Date: 20230320
  Transmission Date: 20230417
  Serious: Yes (Hospitalization, Other)
  Sender: FDA-Public Use
  Company Number: US-TEVA-2023-US-2867573

PATIENT
  Age: 38 Year
  Sex: Male

DRUGS (5)
  1. GABAPENTIN [Suspect]
     Active Substance: GABAPENTIN
     Indication: Drug withdrawal syndrome
     Dosage: 900 MILLIGRAM DAILY; 300MG 3 TIMES A DAY
     Route: 065
  2. CLONIDINE [Suspect]
     Active Substance: CLONIDINE
     Indication: Drug withdrawal syndrome
     Dosage: .2 MILLIGRAM DAILY;
     Route: 065
  3. TRAMADOL [Suspect]
     Active Substance: TRAMADOL
     Indication: Drug abuse
     Dosage: 12 TO 14 TRAMADOL 50MG TABLETS DAILY
     Route: 065
  4. SERTRALINE [Suspect]
     Active Substance: SERTRALINE HYDROCHLORIDE
     Indication: Depression
     Dosage: 50 MILLIGRAM DAILY;
     Route: 065
  5. HYDROCODONE [Suspect]
     Active Substance: HYDROCODONE
     Indication: Drug abuse
     Route: 065

REACTIONS (8)
  - Drug withdrawal syndrome [Unknown]
  - Abdominal pain [Unknown]
  - Chills [Unknown]
  - Nausea [Unknown]
  - Poor quality sleep [Unknown]
  - Drug ineffective [Unknown]
  - Drug abuse [Unknown]
  - Overdose [Unknown]
